FAERS Safety Report 25089013 (Version 1)
Quarter: 2025Q1

REPORT INFORMATION
  Report Type: Spontaneous
  Country: CN (occurrence: CN)
  Receive Date: 20250318
  Receipt Date: 20250318
  Transmission Date: 20250408
  Serious: Yes (Hospitalization, Other)
  Sender: PFIZER
  Company Number: CN-PFIZER INC-PV202500031023

PATIENT
  Age: 59 Year
  Sex: Male
  Weight: 62 kg

DRUGS (2)
  1. CYTARABINE [Suspect]
     Active Substance: CYTARABINE
     Indication: Acute myeloid leukaemia
     Dosage: 1 G, 3X/DAY
     Route: 041
     Dates: start: 20250228, end: 20250302
  2. SODIUM CHLORIDE [Concomitant]
     Active Substance: SODIUM CHLORIDE
     Indication: Vehicle solution use
     Dosage: 500 ML, 3X/DAY
     Route: 041
     Dates: start: 20250228, end: 20250302

REACTIONS (3)
  - Myelosuppression [Recovering/Resolving]
  - Pyrexia [Recovering/Resolving]
  - Gingival bleeding [Unknown]

NARRATIVE: CASE EVENT DATE: 20250302
